FAERS Safety Report 18159965 (Version 2)
Quarter: 2021Q2

REPORT INFORMATION
  Report Type: Spontaneous
  Country: CA (occurrence: CA)
  Receive Date: 20200817
  Receipt Date: 20210419
  Transmission Date: 20210717
  Serious: Yes (Hospitalization, Other)
  Sender: FDA-Public Use
  Company Number: NVSC2020CA223808

PATIENT
  Age: 74 Year
  Sex: Female

DRUGS (6)
  1. SANDOSTATIN LAR DEPOT [Suspect]
     Active Substance: OCTREOTIDE ACETATE
     Dosage: 60 MG, QMO
     Route: 030
  2. SANDOSTATIN [Suspect]
     Active Substance: OCTREOTIDE ACETATE
     Indication: NEUROENDOCRINE TUMOUR
     Dosage: UNK
     Route: 058
  3. LUTATHERA [Suspect]
     Active Substance: LUTETIUM OXODOTREOTIDE LU-177
     Indication: PRODUCT USED FOR UNKNOWN INDICATION
     Dosage: UNK (SOLUTION FOR INFUSION)
     Route: 065
  4. SANDOSTATIN [Suspect]
     Active Substance: OCTREOTIDE ACETATE
  5. SANDOSTATIN LAR DEPOT [Suspect]
     Active Substance: OCTREOTIDE ACETATE
     Indication: NEUROENDOCRINE TUMOUR
     Dosage: 30 MG, QMO
     Route: 030
  6. SANDOSTATIN [Suspect]
     Active Substance: OCTREOTIDE ACETATE

REACTIONS (37)
  - Neoplasm progression [Unknown]
  - Hormone level abnormal [Unknown]
  - Secretion discharge [Unknown]
  - Gastrointestinal carcinoma [Unknown]
  - Faeces discoloured [Unknown]
  - Nausea [Unknown]
  - Abdominal pain [Unknown]
  - Nasal dryness [Unknown]
  - Alopecia [Unknown]
  - Fatigue [Unknown]
  - Brain scan abnormal [Unknown]
  - Metastases to lung [Unknown]
  - Pulmonary embolism [Unknown]
  - Temperature intolerance [Unknown]
  - Blood pressure systolic increased [Unknown]
  - Abdominal mass [Unknown]
  - Second primary malignancy [Unknown]
  - Metastases to liver [Unknown]
  - Agitation [Unknown]
  - Illness [Unknown]
  - Nasopharyngitis [Unknown]
  - Headache [Unknown]
  - Asthenia [Unknown]
  - Malaise [Unknown]
  - Thrombosis [Unknown]
  - Dehydration [Unknown]
  - Vomiting [Unknown]
  - Pain [Unknown]
  - Stress [Unknown]
  - Mucous stools [Unknown]
  - Influenza [Unknown]
  - Diarrhoea [Unknown]
  - Abdominal pain upper [Unknown]
  - Contusion [Unknown]
  - Depression [Unknown]
  - Malignant neoplasm progression [Unknown]
  - Myalgia [Unknown]
